FAERS Safety Report 16963985 (Version 1)
Quarter: 2019Q4

REPORT INFORMATION
  Report Type: Spontaneous
  Country: FR (occurrence: FR)
  Receive Date: 20191026
  Receipt Date: 20191026
  Transmission Date: 20200122
  Serious: Yes (Hospitalization)
  Sender: FDA-Public Use
  Company Number: FR-ACCORD-159173

PATIENT
  Age: 51 Year
  Sex: Male

DRUGS (4)
  1. CLOZAPINE. [Suspect]
     Active Substance: CLOZAPINE
     Indication: SCHIZOPHRENIA
     Route: 048
     Dates: end: 20190812
  2. DEPAKOTE [Concomitant]
     Active Substance: DIVALPROEX SODIUM
     Indication: SCHIZOPHRENIA
     Route: 048
     Dates: end: 20190812
  3. SERESTA [Concomitant]
     Active Substance: OXAZEPAM
     Indication: SCHIZOPHRENIA
     Dosage: STRENGTH : 20 MG
     Route: 048
     Dates: end: 20190812
  4. LOXAPAC [Suspect]
     Active Substance: LOXAPINE
     Indication: SCHIZOPHRENIA
     Dosage: STRENGTH : 100 MG
     Route: 048
     Dates: end: 20190812

REACTIONS (2)
  - Subileus [Recovering/Resolving]
  - Megacolon [Recovering/Resolving]

NARRATIVE: CASE EVENT DATE: 20190812
